FAERS Safety Report 15910049 (Version 1)
Quarter: 2019Q1

REPORT INFORMATION
  Report Type: Spontaneous
  Country: SE (occurrence: SE)
  Receive Date: 20190204
  Receipt Date: 20190204
  Transmission Date: 20190417
  Serious: Yes (Other)
  Sender: FDA-Public Use
  Company Number: SE-NOVOPROD-643703

PATIENT
  Age: 66 Year
  Sex: Female

DRUGS (6)
  1. ISOPHANE INSULIN [Concomitant]
     Active Substance: INSULIN NOS
     Indication: PRODUCT USED FOR UNKNOWN INDICATION
     Dosage: UNK
     Dates: start: 20170704
  2. DIMOR [Concomitant]
     Active Substance: LOPERAMIDE
     Indication: PRODUCT USED FOR UNKNOWN INDICATION
     Dosage: UNK
     Route: 065
     Dates: start: 20130101
  3. VICTOZA [Suspect]
     Active Substance: LIRAGLUTIDE
     Indication: DIABETES MELLITUS
     Dosage: UNIT DOSE ^0.6^
     Route: 058
     Dates: start: 20180412
  4. VICTOZA [Suspect]
     Active Substance: LIRAGLUTIDE
     Dosage: UNIT DOSE ^1.2^
     Route: 058
     Dates: start: 20180601
  5. VICTOZA [Suspect]
     Active Substance: LIRAGLUTIDE
     Dosage: UNIT DOSE ^1.8^
     Route: 058
     Dates: start: 20181220, end: 20190110
  6. METFORMIN [Concomitant]
     Active Substance: METFORMIN HYDROCHLORIDE
     Indication: PRODUCT USED FOR UNKNOWN INDICATION
     Dosage: UNK
     Route: 065
     Dates: start: 20120423

REACTIONS (2)
  - Thyroid haemorrhage [Unknown]
  - Goitre [Not Recovered/Not Resolved]

NARRATIVE: CASE EVENT DATE: 20190101
